FAERS Safety Report 5311254-1 (Version None)
Quarter: 2007Q2

REPORT INFORMATION
  Report Type: 
  Country: None (occurrence: None)
  Receive Date: 20070430
  Receipt Date: 20070418
  Transmission Date: 20071010
  Serious: Yes (Hospitalization)
  Sender: FDA-Public Use
  Company Number: PHRM2007FR01321

PATIENT
  Age: 61 Year
  Sex: Male

DRUGS (2)
  1. LIORESAL [Suspect]
     Indication: MUSCLE SPASTICITY
     Dosage: 30 MG/DAY
     Route: 048
  2. LIORESAL [Suspect]
     Dosage: 60 MG/DAY
     Route: 048

REACTIONS (7)
  - ANTIDEPRESSANT DRUG LEVEL [None]
  - BLOOD CREATININE INCREASED [None]
  - CONFUSIONAL STATE [None]
  - FALSE POSITIVE LABORATORY RESULT [None]
  - MIOSIS [None]
  - RENAL FAILURE [None]
  - SEPSIS [None]
